FAERS Safety Report 10163116 (Version 3)
Quarter: 2014Q2

REPORT INFORMATION
  Report Type: Report from Study
  Country: US (occurrence: US)
  Receive Date: 20140509
  Receipt Date: 20140528
  Transmission Date: 20141212
  Serious: Yes (Hospitalization)
  Sender: FDA-Public Use
  Company Number: US-ACTELION-A-US2013-92051

PATIENT
  Age: 58 Year
  Sex: Female

DRUGS (2)
  1. TRACLEER [Suspect]
     Indication: PULMONARY ARTERIAL HYPERTENSION
     Dosage: UNK
     Route: 048
     Dates: start: 2010
  2. VENTAVIS [Suspect]
     Indication: PULMONARY ARTERIAL HYPERTENSION
     Dosage: 5 MCG, 5XDAY
     Route: 055
     Dates: start: 201112

REACTIONS (8)
  - Electrocardiogram abnormal [Recovering/Resolving]
  - Atrial fibrillation [Recovering/Resolving]
  - Cardiac ablation [Recovering/Resolving]
  - Heart rate increased [Recovering/Resolving]
  - Pulmonary arterial hypertension [Recovering/Resolving]
  - Syncope [Recovering/Resolving]
  - Dyspnoea [Unknown]
  - Nasopharyngitis [Unknown]
